FAERS Safety Report 25286348 (Version 2)
Quarter: 2025Q2

REPORT INFORMATION
  Report Type: Spontaneous
  Country: FR (occurrence: FR)
  Receive Date: 20250509
  Receipt Date: 20250515
  Transmission Date: 20250716
  Serious: Yes (Life-Threatening, Hospitalization, Other)
  Sender: SANOFI AVENTIS
  Company Number: FR-DialogSolutions-SAAVPROD-PI766286-C1

PATIENT
  Age: 71 Year
  Sex: Male

DRUGS (10)
  1. ASPIRIN LYSINE [Suspect]
     Active Substance: ASPIRIN LYSINE
     Indication: Prophylaxis
     Dosage: 75 MG, QD
  2. DOCETAXEL [Suspect]
     Active Substance: DOCETAXEL
     Indication: Prostate cancer
  3. DOCETAXEL [Suspect]
     Active Substance: DOCETAXEL
     Indication: Metastases to bone
  4. DOCETAXEL [Suspect]
     Active Substance: DOCETAXEL
     Indication: Metastases to lymph nodes
  5. CLOPIDOGREL BISULFATE [Suspect]
     Active Substance: CLOPIDOGREL BISULFATE
     Indication: Prophylaxis
     Dosage: 75 MG, QD
  6. CLOPIDOGREL BISULFATE [Suspect]
     Active Substance: CLOPIDOGREL BISULFATE
     Indication: Antiplatelet therapy
  7. INNOHEP [Suspect]
     Active Substance: TINZAPARIN SODIUM
     Indication: Prophylaxis
     Dosage: 14000 U, QD
     Route: 058
  8. INNOHEP [Suspect]
     Active Substance: TINZAPARIN SODIUM
     Indication: Atrial fibrillation
  9. INNOHEP [Suspect]
     Active Substance: TINZAPARIN SODIUM
     Indication: Anticoagulant therapy
  10. AMOXICILLIN [Concomitant]
     Active Substance: AMOXICILLIN
     Indication: Antibiotic prophylaxis
     Dosage: 3 G/DAY

REACTIONS (13)
  - Shock haemorrhagic [Unknown]
  - Tachypnoea [Unknown]
  - Pulmonary oedema [Unknown]
  - Pallor [Unknown]
  - Pneumonia aspiration [Unknown]
  - Psychomotor retardation [Unknown]
  - Haemodynamic instability [Unknown]
  - Hypotension [Unknown]
  - Haematemesis [Unknown]
  - Thrombocytopenia [Unknown]
  - Anaemia [Unknown]
  - Epistaxis [Recovered/Resolved]
  - Tooth socket haemorrhage [Recovered/Resolved]
